FAERS Safety Report 9688934 (Version 5)
Quarter: 2014Q2

REPORT INFORMATION
  Report Type: Report from Study
  Country: PT (occurrence: PT)
  Receive Date: 20131114
  Receipt Date: 20140522
  Transmission Date: 20141212
  Serious: Yes (Death, Life-Threatening, Disabling, Other)
  Sender: FDA-Public Use
  Company Number: PT-ROCHE-1303683

PATIENT
  Sex: Female
  Weight: 58 kg

DRUGS (3)
  1. RANIBIZUMAB [Suspect]
     Indication: AGE-RELATED MACULAR DEGENERATION
     Route: 050
     Dates: start: 20070727
  2. RANIBIZUMAB [Suspect]
     Route: 050
     Dates: start: 20130517
  3. ATORVASTATIN [Concomitant]
     Indication: DYSLIPIDAEMIA

REACTIONS (2)
  - Cerebrovascular accident [Fatal]
  - Myocardial infarction [Unknown]
